FAERS Safety Report 8512066-8 (Version None)
Quarter: 2012Q3

REPORT INFORMATION
  Report Type: 
  Country: None (occurrence: None)
  Receive Date: 20120716
  Receipt Date: 20120702
  Transmission Date: 20120928
  Serious: No
  Sender: FDA-Public Use
  Company Number: US-ASTRAZENECA-2012SE45261

PATIENT
  Age: 47 Year
  Sex: Male
  Weight: 94.3 kg

DRUGS (1)
  1. SYMBICORT [Suspect]
     Dosage: 160/4.5MCG, UNKNOWN
     Route: 055
     Dates: start: 20091001

REACTIONS (3)
  - CONDITION AGGRAVATED [None]
  - HYPERSENSITIVITY [None]
  - INTENTIONAL DRUG MISUSE [None]
